FAERS Safety Report 6919806-X (Version None)
Quarter: 2010Q3

REPORT INFORMATION
  Report Type: 
  Country: None (occurrence: None)
  Receive Date: 20100811
  Receipt Date: 20100802
  Transmission Date: 20110219
  Serious: Yes (Hospitalization)
  Sender: FDA-Public Use
  Company Number: JP-ABBOTT-10P-087-0657419-00

PATIENT
  Sex: Female

DRUGS (4)
  1. CLARITHROMYCIN [Suspect]
     Indication: BRONCHITIS
     Route: 048
     Dates: start: 20100705, end: 20100706
  2. TRANEXAMIC ACID [Concomitant]
     Indication: BRONCHITIS
     Dosage: 750MG DAILY
     Route: 048
     Dates: start: 20100705
  3. MUCOSOLVAN [Concomitant]
     Indication: BRONCHITIS
     Dosage: 60MG DAILY
     Route: 048
     Dates: start: 20100705
  4. SYMBICORT [Concomitant]
     Indication: BRONCHITIS
     Dosage: 4 PUFFS DAILY
     Route: 055
     Dates: start: 20100705

REACTIONS (5)
  - DRUG HYPERSENSITIVITY [None]
  - LOSS OF CONSCIOUSNESS [None]
  - PYREXIA [None]
  - RASH GENERALISED [None]
  - VOMITING [None]
